FAERS Safety Report 8928019 (Version 1)
Quarter: 2012Q4

REPORT INFORMATION
  Report Type: Spontaneous
  Country: US (occurrence: None)
  Receive Date: 20121121
  Receipt Date: 20121121
  Transmission Date: 20130627
  Serious: No
  Sender: FDA-Public Use
  Company Number: None

PATIENT
  Age: 52 Year
  Sex: Male

DRUGS (3)
  1. ACIPHEX [Suspect]
  2. NEXIUM [Suspect]
  3. RANITIDINE [Suspect]

REACTIONS (4)
  - Treatment failure [None]
  - Dizziness [None]
  - Nausea [None]
  - Headache [None]
